FAERS Safety Report 8797358 (Version 4)
Quarter: 2012Q4

REPORT INFORMATION
  Report Type: Report from Study
  Country: DE (occurrence: DE)
  Receive Date: 20120919
  Receipt Date: 20121109
  Transmission Date: 20130627
  Serious: Yes (Death, Hospitalization)
  Sender: FDA-Public Use
  Company Number: DE-ROCHE-1112811

PATIENT
  Age: 69 Year
  Sex: Female
  Weight: 92.7 kg

DRUGS (7)
  1. BEVACIZUMAB [Suspect]
     Indication: BREAST CANCER METASTATIC
     Dosage: date of last dose prior to SAE:14/Aug/2012
     Route: 042
     Dates: start: 20120814, end: 20120830
  2. CAPECITABINE [Suspect]
     Indication: BREAST CANCER METASTATIC
     Dosage: last dose prior to event on 28/Aug/2012
     Route: 048
     Dates: start: 20120815, end: 20120830
  3. PACLITAXEL [Suspect]
     Indication: BREAST CANCER METASTATIC
     Dosage: Last dose prior to event 21/Aug/2012
     Route: 042
     Dates: start: 20120814, end: 20120830
  4. CIPROFLOXACIN [Suspect]
     Indication: BREAST CANCER METASTATIC
     Route: 065
  5. CARVEDILOL [Concomitant]
     Route: 065
     Dates: start: 2007, end: 20120830
  6. ASS [Concomitant]
     Route: 065
     Dates: start: 2007, end: 20120830
  7. NEOTRI [Concomitant]
     Dosage: 2 tablets daily
     Route: 065
     Dates: start: 2007, end: 20120830

REACTIONS (1)
  - Interstitial lung disease [Fatal]
